FAERS Safety Report 6084947-9 (Version None)
Quarter: 2009Q1

REPORT INFORMATION
  Report Type: 
  Country: None (occurrence: None)
  Receive Date: 20090220
  Receipt Date: 20090218
  Transmission Date: 20090719
  Serious: Yes (Death, Hospitalization)
  Sender: FDA-Public Use
  Company Number: CA-WYE-H08262809

PATIENT
  Age: 55 Year
  Sex: Male
  Weight: 82.5 kg

DRUGS (3)
  1. GEMTUZUMAB OZOGAMICIN [Suspect]
     Indication: ACUTE MYELOID LEUKAEMIA
     Dosage: TOTAL DOSE ADMINISTERED THIS COURSE: 12.4 MG
     Route: 042
     Dates: start: 20090106, end: 20090109
  2. CYTARABINE [Suspect]
     Indication: ACUTE MYELOID LEUKAEMIA
     Dosage: TOTAL DOSE ADMINISTERED THIS COURSE: 206 MG
     Route: 042
     Dates: start: 20090106
  3. DAUNORUBICIN HCL [Suspect]
     Indication: ACUTE MYELOID LEUKAEMIA
     Dosage: TOTAL DOSE ADMINISTERED THIS COURSE: 93 MG
     Route: 042
     Dates: start: 20090106

REACTIONS (3)
  - MULTI-ORGAN FAILURE [None]
  - PANCYTOPENIA [None]
  - SEPSIS [None]
